FAERS Safety Report 25094645 (Version 1)
Quarter: 2025Q1

REPORT INFORMATION
  Report Type: Spontaneous
  Country: US (occurrence: None)
  Receive Date: 20250318
  Receipt Date: 20250318
  Transmission Date: 20250409
  Serious: Yes (Hospitalization)
  Sender: FDA-CTU
  Company Number: None

PATIENT
  Age: 35 Year
  Sex: Male
  Weight: 78.75 kg

DRUGS (1)
  1. SKYRIZI [Suspect]
     Active Substance: RISANKIZUMAB-RZAA
     Indication: Psoriasis
     Dates: start: 20241001, end: 20241101

REACTIONS (3)
  - Drug hypersensitivity [None]
  - Swelling face [None]
  - Anaphylactic reaction [None]

NARRATIVE: CASE EVENT DATE: 20241101
